FAERS Safety Report 5126905-4 (Version None)
Quarter: 2006Q4

REPORT INFORMATION
  Report Type: 
  Country: None (occurrence: None)
  Receive Date: 20061011
  Receipt Date: 20061011
  Transmission Date: 20070319
  Serious: Yes (Hospitalization)
  Sender: FDA-Public Use
  Company Number: None

PATIENT
  Sex: Male
  Weight: 101.6057 kg

DRUGS (22)
  1. PROCRIT [Suspect]
     Indication: ANAEMIA
     Dosage: 80000 IU WKLY SQ
     Route: 058
     Dates: start: 20060417, end: 20060707
  2. CYTOXAN [Suspect]
     Indication: BREAST CANCER METASTATIC
     Dosage: 500MG/M^2 Q3WKS, IV
     Route: 042
     Dates: start: 20060405, end: 20060612
  3. ADRIAMYCIN PFS [Suspect]
     Indication: BREAST CANCER METASTATIC
     Dosage: 50MG/M^2 Q3WKS IV
     Route: 042
     Dates: start: 20060405, end: 20060612
  4. ABRAXANE [Suspect]
     Indication: BREAST CANCER METASTATIC
     Dosage: 175MG/M Q3WKS IV
     Route: 042
     Dates: start: 20060407, end: 20060615
  5. ASPIRIN [Concomitant]
  6. LIPITOR [Concomitant]
  7. LORTAB [Concomitant]
  8. FEMARA [Concomitant]
  9. ZESTRIL [Concomitant]
  10. NEXIUM [Concomitant]
  11. VERAPAMIL [Concomitant]
  12. GEMFIBROZIL [Concomitant]
  13. DILAUDID [Concomitant]
  14. BETA CAROTINE [Concomitant]
  15. VIT. B12 [Concomitant]
  16. MEGACE [Concomitant]
  17. ZOFRAN [Concomitant]
  18. COLACE [Concomitant]
  19. ALLOPURINOL [Concomitant]
  20. TYLENOL [Concomitant]
  21. IBUPROFEN [Concomitant]
  22. AMBIEN [Concomitant]

REACTIONS (9)
  - ARRHYTHMIA SUPRAVENTRICULAR [None]
  - CHRONIC OBSTRUCTIVE PULMONARY DISEASE [None]
  - DYSPNOEA [None]
  - FLUID OVERLOAD [None]
  - MUCOSAL INFLAMMATION [None]
  - NEUTROPENIA [None]
  - PANCYTOPENIA [None]
  - PYREXIA [None]
  - TACHYCARDIA [None]
